FAERS Safety Report 5684744-X (Version None)
Quarter: 2008Q1

REPORT INFORMATION
  Report Type: 
  Country: None (occurrence: None)
  Receive Date: 20080328
  Receipt Date: 20070814
  Transmission Date: 20080703
  Serious: Yes (Hospitalization, Other)
  Sender: FDA-Public Use
  Company Number: US-BRISTOL-MYERS SQUIBB COMPANY-13877949

PATIENT
  Sex: Male

DRUGS (2)
  1. ERBITUX [Suspect]
     Dates: end: 20070101
  2. BENADRYL [Concomitant]

REACTIONS (2)
  - INFUSION RELATED REACTION [None]
  - RESPIRATORY ARREST [None]
